FAERS Safety Report 4601078-2 (Version None)
Quarter: 2005Q1

REPORT INFORMATION
  Report Type: 
  Country: None (occurrence: None)
  Receive Date: 20050308
  Receipt Date: 20050225
  Transmission Date: 20050727
  Serious: Yes (Other)
  Sender: FDA-Public Use
  Company Number: FI-JNJFOC-20050103342

PATIENT
  Age: 36 Year
  Sex: Male

DRUGS (9)
  1. REMICADE [Suspect]
     Route: 042
  2. REMICADE [Suspect]
     Route: 042
  3. REMICADE [Suspect]
     Route: 042
  4. REMICADE [Suspect]
     Route: 042
  5. REMICADE [Suspect]
     Route: 042
  6. REMICADE [Suspect]
     Route: 042
  7. REMICADE [Suspect]
     Indication: ANKYLOSING SPONDYLITIS
     Route: 042
  8. MOBIC [Concomitant]
     Route: 049
  9. BURANA [Concomitant]
     Route: 065

REACTIONS (4)
  - CHOLELITHIASIS [None]
  - HEPATIC STEATOSIS [None]
  - HEPATITIS [None]
  - LABORATORY TEST ABNORMAL [None]
